FAERS Safety Report 4541873-1 (Version None)
Quarter: 2004Q4

REPORT INFORMATION
  Report Type: 
  Country: None (occurrence: None)
  Receive Date: 20041227
  Receipt Date: 20041214
  Transmission Date: 20050328
  Serious: Yes (Hospitalization, Other)
  Sender: FDA-Public Use
  Company Number: 210741

PATIENT
  Age: 55 Year
  Sex: Female
  Weight: 46 kg

DRUGS (2)
  1. HERCEPTIN [Suspect]
     Indication: BREAST CANCER
     Dosage: 8 MG/KG, SINGLE, INTRAVENOUS
     Route: 042
     Dates: start: 20040915, end: 20040915
  2. HERCEPTIN [Suspect]
     Indication: BREAST CANCER
     Dosage: 8 MG/KG, SINGLE, INTRAVENOUS
     Route: 042
     Dates: end: 20041006

REACTIONS (5)
  - CORONARY ARTERY STENOSIS [None]
  - DYSPNOEA EXERTIONAL [None]
  - EJECTION FRACTION DECREASED [None]
  - ISCHAEMIC CARDIOMYOPATHY [None]
  - MYOCARDIAL INFARCTION [None]
